FAERS Safety Report 23569110 (Version 1)
Quarter: 2024Q1

REPORT INFORMATION
  Report Type: Spontaneous
  Country: US (occurrence: None)
  Receive Date: 20240227
  Receipt Date: 20240227
  Transmission Date: 20240410
  Serious: No
  Sender: FDA-Public Use
  Company Number: 2024A047535

PATIENT

DRUGS (1)
  1. PRILOSEC OTC [Suspect]
     Active Substance: OMEPRAZOLE MAGNESIUM
     Indication: Gastrointestinal disorder
     Dosage: I DO TAKE PRILOSEC BEFORE I EAT
     Route: 048

REACTIONS (12)
  - Hyperhidrosis [Unknown]
  - Arthralgia [Unknown]
  - Nausea [Unknown]
  - Sinus disorder [Unknown]
  - Productive cough [Unknown]
  - Throat irritation [Unknown]
  - Oropharyngeal pain [Unknown]
  - Eye irritation [Unknown]
  - Nasal discomfort [Unknown]
  - Eye pain [Unknown]
  - Rhinalgia [Unknown]
  - Product use in unapproved indication [Unknown]
